FAERS Safety Report 12561018 (Version 1)
Quarter: 2016Q3

REPORT INFORMATION
  Report Type: Report from Study
  Country: CA (occurrence: CA)
  Receive Date: 20160715
  Receipt Date: 20160715
  Transmission Date: 20161109
  Serious: Yes (Other)
  Sender: FDA-Public Use
  Company Number: CA-AMGEN-CANSL2016086147

PATIENT
  Age: 62 Year
  Sex: Female

DRUGS (6)
  1. EFFEXOR [Concomitant]
     Active Substance: VENLAFAXINE HYDROCHLORIDE
  2. GLUCOSAMINE [Concomitant]
     Active Substance: GLUCOSAMINE
  3. VITAMIN D [Concomitant]
     Active Substance: CHOLECALCIFEROL
  4. PROLIA [Suspect]
     Active Substance: DENOSUMAB
     Indication: PRODUCT USED FOR UNKNOWN INDICATION
     Dosage: UNK
     Route: 065
     Dates: start: 20140603
  5. CALCIUM [Concomitant]
     Active Substance: CALCIUM
  6. CHONDROITIN [Concomitant]
     Active Substance: CHONDROITIN

REACTIONS (13)
  - Pelvic pain [Unknown]
  - Limb discomfort [Unknown]
  - Hypoaesthesia [Unknown]
  - Urinary tract infection bacterial [Unknown]
  - Musculoskeletal discomfort [Not Recovered/Not Resolved]
  - Paraesthesia [Unknown]
  - Pain in extremity [Not Recovered/Not Resolved]
  - Osteoarthritis [Unknown]
  - Muscle spasms [Unknown]
  - Back pain [Not Recovered/Not Resolved]
  - Arthralgia [Unknown]
  - Abdominal pain upper [Not Recovered/Not Resolved]
  - Urinary tract infection [Unknown]

NARRATIVE: CASE EVENT DATE: 201412
